FAERS Safety Report 7232740-3 (Version None)
Quarter: 2011Q1

REPORT INFORMATION
  Report Type: 
  Country: None (occurrence: None)
  Receive Date: 20110119
  Receipt Date: 20110113
  Transmission Date: 20110831
  Serious: Yes (Life-Threatening, Other)
  Sender: FDA-Public Use
  Company Number: DE-SANOFI-AVENTIS-2010SA076414

PATIENT
  Age: 57 Year
  Sex: Male
  Weight: 130.1 kg

DRUGS (12)
  1. INEGY [Concomitant]
     Route: 065
  2. MULTAQ [Suspect]
     Indication: ATRIAL FIBRILLATION
     Route: 048
     Dates: start: 20101021, end: 20101101
  3. AMLODIPINE [Concomitant]
     Route: 065
  4. FURO [Concomitant]
     Route: 065
  5. RAMIPRIL [Concomitant]
     Route: 065
  6. ALLOPURINOL [Concomitant]
     Route: 065
  7. METOPROLOL [Concomitant]
     Route: 065
  8. MULTAQ [Suspect]
     Route: 048
     Dates: start: 20101021, end: 20101101
  9. METHIMAZOLE [Concomitant]
     Indication: HYPERTHYROIDISM
     Route: 065
  10. CARBIMAZOL [Concomitant]
     Dosage: DOSAGE: 2X1/2 DAILY
     Route: 065
  11. MARCUMAR [Concomitant]
     Route: 065
  12. MOXONIDINE [Concomitant]
     Route: 065

REACTIONS (4)
  - RENAL FAILURE ACUTE [None]
  - BLOOD CREATININE INCREASED [None]
  - GLOMERULAR FILTRATION RATE DECREASED [None]
  - CONDITION AGGRAVATED [None]
